FAERS Safety Report 4282870-3 (Version None)
Quarter: 2004Q1

REPORT INFORMATION
  Report Type: 
  Country: None (occurrence: None)
  Receive Date: 20040130
  Receipt Date: 20030731
  Transmission Date: 20041129
  Serious: No
  Sender: FDA-Public Use
  Company Number: US-BRISTOL-MYERS SQUIBB COMPANY-12343059

PATIENT
  Age: 39 Year
  Sex: Male
  Weight: 61 kg

DRUGS (1)
  1. SERZONE [Suspect]
     Indication: OBSESSIVE-COMPULSIVE DISORDER
     Dosage: WAS TAKING SERZONE 50MG BID X 5 YRS,THEN DECREASED TO 50MG QD ON 10-JUL-03, THEN D/C X 4DYS
     Route: 048

REACTIONS (7)
  - DIZZINESS [None]
  - FEELING HOT [None]
  - FEELING JITTERY [None]
  - NAUSEA [None]
  - NERVOUSNESS [None]
  - PANIC ATTACK [None]
  - PARAESTHESIA [None]
